FAERS Safety Report 19656852 (Version 1)
Quarter: 2021Q3

REPORT INFORMATION
  Report Type: Other
  Country: IL (occurrence: IL)
  Receive Date: 20210804
  Receipt Date: 20210804
  Transmission Date: 20211014
  Serious: Yes (Other)
  Sender: FDA-Public Use
  Company Number: IL-ROCHE-2879268

PATIENT

DRUGS (3)
  1. BEVACIZUMAB. [Suspect]
     Active Substance: BEVACIZUMAB
     Indication: GLIOMA
     Route: 065
  2. TEMOZOLOMIDE. [Suspect]
     Active Substance: TEMOZOLOMIDE
     Indication: GLIOMA
     Route: 065
  3. METFORMIN [Suspect]
     Active Substance: METFORMIN HYDROCHLORIDE
     Indication: GLIOMA
     Dosage: COHORT #2 RECEIVED #850 MG TWICE DAILY, COHORT #3 RECEIVED #850 MG THREE TIMES DAILY. COHORT #?1 WER
     Route: 065

REACTIONS (2)
  - Nausea [Unknown]
  - Hyperuricaemia [Unknown]
